FAERS Safety Report 7344914-1 (Version None)
Quarter: 2011Q1

REPORT INFORMATION
  Report Type: 
  Country: None (occurrence: None)
  Receive Date: 20110228
  Receipt Date: 20110217
  Transmission Date: 20110831
  Serious: Yes (Hospitalization)
  Sender: FDA-Public Use
  Company Number: 027692

PATIENT

DRUGS (3)
  1. TOPAMAX [Concomitant]
  2. ORFIRIL /00228501/ (ORFIRIL) (NOT SPECIFIED) [Suspect]
  3. KEPPRA [Suspect]

REACTIONS (1)
  - PLATELET COUNT DECREASED [None]
